FAERS Safety Report 7380295-5 (Version None)
Quarter: 2011Q1

REPORT INFORMATION
  Report Type: 
  Country: None (occurrence: None)
  Receive Date: 20110318
  Receipt Date: 20110303
  Transmission Date: 20110831
  Serious: Yes (Hospitalization, Other)
  Sender: FDA-Public Use
  Company Number: AUR-APL-2011-00890

PATIENT
  Age: 59 Year
  Sex: Male
  Weight: 105 kg

DRUGS (14)
  1. SIMVASTATIN [Suspect]
     Dosage: 30 MG, DAILY, ORAL
     Route: 048
     Dates: start: 20080101
  2. FUROSEMIDE [Concomitant]
  3. INSULIN SQ [Concomitant]
  4. JANUMET [Concomitant]
  5. AVANDAMET [Concomitant]
  6. AMLODIPINE BESYLATE [Suspect]
     Dosage: 10MG (1/2 PER DAY);
  7. GODAMED [Suspect]
     Dosage: 1DF, DAILY,
  8. ENAHEXAL [Suspect]
     Dosage: 10MG, BID;
  9. SPIRONOLACTONE [Concomitant]
  10. ATENOLOL [Suspect]
  11. TORSEMIDE [Suspect]
     Dosage: 20MG (1/2 PER DAY);
  12. METFORMIN [Suspect]
     Dosage: 1000MG, BID, ORAL
     Route: 048
     Dates: start: 20070101
  13. DOCITON [Concomitant]
  14. ONGLYZA [Suspect]
     Indication: DIABETES MELLITUS
     Dosage: 1DF, DAILY, ORAL
     Route: 048
     Dates: start: 20100726

REACTIONS (14)
  - HEPATOTOXICITY [None]
  - HAEMOGLOBIN DECREASED [None]
  - HYPOTENSION [None]
  - MEAN CELL VOLUME INCREASED [None]
  - VARICES OESOPHAGEAL [None]
  - PORTAL HYPERTENSIVE GASTROPATHY [None]
  - LIPASE INCREASED [None]
  - AORTIC STENOSIS [None]
  - ESCHERICHIA SEPSIS [None]
  - PLATELET COUNT DECREASED [None]
  - HEPATIC FAILURE [None]
  - BLOOD GLUCOSE INCREASED [None]
  - URINARY TRACT INFECTION [None]
  - PORTAL HYPERTENSION [None]
